FAERS Safety Report 8825800 (Version 1)
Quarter: 2012Q4

REPORT INFORMATION
  Report Type: 
  Country: US (occurrence: US)
  Receive Date: 20121004
  Receipt Date: 20121004
  Transmission Date: 20130627
  Serious: No
  Sender: FDA-Public Use
  Company Number: US-ASTRAZENECA-2012SE73024

PATIENT
  Sex: Female

DRUGS (4)
  1. ARIMIDEX [Suspect]
     Route: 048
     Dates: start: 201008
  2. AZOLE [Concomitant]
  3. DIPHENHYDRAMINE [Concomitant]
  4. VITAMIN D [Concomitant]

REACTIONS (1)
  - Impaired healing [Unknown]
